FAERS Safety Report 4392521-5 (Version None)
Quarter: 2004Q3

REPORT INFORMATION
  Report Type: 
  Country: None (occurrence: None)
  Receive Date: 20040702
  Receipt Date: 20040203
  Transmission Date: 20050211
  Serious: Yes (Other)
  Sender: FDA-Public Use
  Company Number: TOR-2004-0001

PATIENT
  Age: 63 Year
  Sex: Female

DRUGS (10)
  1. FARESTON [Suspect]
     Indication: BREAST CANCER
     Route: 048
     Dates: start: 20001109, end: 20040603
  2. FARESTON [Suspect]
     Indication: PROPHYLAXIS
     Route: 048
     Dates: start: 20001109, end: 20040603
  3. CIPRALEX [Suspect]
     Indication: DEPRESSION
     Dosage: 20 MG (20 MG, 1 IN 1D)
     Route: 048
     Dates: start: 20030601, end: 20040401
  4. DIAZEPAM [Suspect]
  5. ANADIN EXTRA [Suspect]
  6. KETOPROFEN [Concomitant]
  7. MISOPROSTOL [Concomitant]
  8. FIBROGEL [Concomitant]
  9. VENLAFAXIN [Concomitant]
  10. OLANZAPINE [Concomitant]

REACTIONS (7)
  - ATAXIA [None]
  - DEPRESSION [None]
  - GAIT DISTURBANCE [None]
  - LOWER RESPIRATORY TRACT INFECTION [None]
  - MULTIPLE DRUG OVERDOSE [None]
  - NYSTAGMUS [None]
  - TREMOR [None]
